FAERS Safety Report 5156429-X (Version None)
Quarter: 2006Q4

REPORT INFORMATION
  Report Type: 
  Country: None (occurrence: None)
  Receive Date: 20061122
  Receipt Date: 20061121
  Transmission Date: 20070319
  Serious: Yes (Hospitalization)
  Sender: FDA-Public Use
  Company Number: BG-JNJFOC-20061103395

PATIENT
  Sex: Female
  Weight: 77 kg

DRUGS (6)
  1. DOXIL [Suspect]
     Route: 042
  2. DOXIL [Suspect]
     Indication: BREAST CANCER METASTATIC
     Route: 042
  3. DOCETAXEL [Suspect]
  4. DOCETAXEL [Suspect]
     Indication: BREAST CANCER METASTATIC
  5. METOPROLOL [Concomitant]
  6. ENALAPRIL MALEATE AND HYDROCHLOROTHIAZIDE [Concomitant]

REACTIONS (1)
  - SINUS TACHYCARDIA [None]
